FAERS Safety Report 5863555-6 (Version None)
Quarter: 2008Q3

REPORT INFORMATION
  Report Type: 
  Country: None (occurrence: None)
  Receive Date: 20080828
  Receipt Date: 20080815
  Transmission Date: 20090109
  Serious: No
  Sender: FDA-Public Use
  Company Number: GB-ELI_LILLY_AND_COMPANY-GB200808000451

PATIENT
  Sex: Male
  Weight: 94 kg

DRUGS (8)
  1. HUMATROPE [Suspect]
     Indication: GROWTH HORMONE DEFICIENCY
     Dosage: 0.3 MG, DAILY (1/D)
     Route: 058
     Dates: start: 19991213, end: 20080724
  2. HUMATROPE [Suspect]
     Dosage: 1.5 MG, DAILY (1/D)
     Route: 058
     Dates: start: 20080725, end: 20080725
  3. THYROXINE [Concomitant]
     Indication: HYPOTHYROIDISM
     Dates: start: 20000101
  4. HYDROCORTISONE [Concomitant]
     Indication: BLOOD CORTISOL ABNORMAL
     Dates: start: 19090514
  5. TESTOSTERONE [Concomitant]
     Indication: HYPOGONADISM
     Dates: start: 20050826
  6. NIFEDIPINE [Concomitant]
     Indication: HYPERTENSION
     Dates: start: 19960701
  7. ASPIRIN [Concomitant]
     Indication: PROPHYLAXIS
     Dates: start: 20050614
  8. BENDROFLUMETHIAZIDE [Concomitant]
     Indication: HYPERTENSION
     Dates: start: 20030101

REACTIONS (1)
  - ACCIDENTAL OVERDOSE [None]
